FAERS Safety Report 23141289 (Version 1)
Quarter: 2023Q4

REPORT INFORMATION
  Report Type: Spontaneous
  Country: US (occurrence: US)
  Receive Date: 20231103
  Receipt Date: 20231103
  Transmission Date: 20240109
  Serious: No
  Sender: FDA-Public Use
  Company Number: US-OPELLA-2023OHG010864

PATIENT
  Age: 72 Year
  Sex: Female

DRUGS (1)
  1. DULCOLAX CHEWY BITES ASSORTED FRUITS [Suspect]
     Active Substance: MAGNESIUM HYDROXIDE
     Route: 065
     Dates: start: 2023

REACTIONS (3)
  - Extra dose administered [Unknown]
  - Malaise [Unknown]
  - Vomiting [Unknown]

NARRATIVE: CASE EVENT DATE: 20230901
